FAERS Safety Report 19687067 (Version 1)
Quarter: 2021Q3

REPORT INFORMATION
  Report Type: Spontaneous
  Country: US (occurrence: US)
  Receive Date: 20210811
  Receipt Date: 20210811
  Transmission Date: 20211014
  Serious: No
  Sender: FDA-Public Use
  Company Number: US-PFIZER INC-2021882194

PATIENT
  Age: 61 Year
  Sex: Female

DRUGS (1)
  1. LYRICA [Suspect]
     Active Substance: PREGABALIN
     Indication: NEURALGIA
     Dosage: 350 MG, DAILY (THREE CAPSULES IN THE MORNING AND FOUR CAPSULES IN THE EVENING)
     Dates: start: 2012

REACTIONS (5)
  - Eye allergy [Unknown]
  - Rhinorrhoea [Unknown]
  - Sinus disorder [Unknown]
  - Intentional product misuse [Unknown]
  - Drug hypersensitivity [Unknown]
